FAERS Safety Report 8801146 (Version 1)
Quarter: 2012Q4

REPORT INFORMATION
  Report Type: Report from Study
  Country: US (occurrence: US)
  Receive Date: 20120920
  Receipt Date: 20120920
  Transmission Date: 20130627
  Serious: Yes (Death, Hospitalization)
  Sender: FDA-Public Use
  Company Number: US-ROCHE-782769

PATIENT
  Age: 63 Year
  Sex: Male
  Weight: 68 kg

DRUGS (1)
  1. XELODA [Suspect]
     Indication: PANCREATIC CARCINOMA
     Route: 048
     Dates: start: 201103, end: 20110718

REACTIONS (7)
  - Death [Fatal]
  - Dehydration [Unknown]
  - Oedema peripheral [Unknown]
  - Oedema peripheral [Unknown]
  - Dyspnoea [Unknown]
  - Skin fissures [Unknown]
  - Skin discolouration [Unknown]
